FAERS Safety Report 25908021 (Version 5)
Quarter: 2025Q4

REPORT INFORMATION
  Report Type: Spontaneous
  Country: JP (occurrence: JP)
  Receive Date: 20251010
  Receipt Date: 20251030
  Transmission Date: 20260117
  Serious: Yes (Death)
  Sender: MALLINCKRODT
  Company Number: JP-MALLINCKRODT-MNK202506272

PATIENT
  Age: 77 Year
  Sex: Male
  Weight: 60 kg

DRUGS (6)
  1. NITRIC OXIDE [Suspect]
     Active Substance: NITRIC OXIDE
     Indication: Shock
     Dosage: 20 PPM
     Route: 055
     Dates: start: 202509, end: 20251005
  2. NITRIC OXIDE [Suspect]
     Active Substance: NITRIC OXIDE
     Indication: Shock
  3. FENTANYL [Concomitant]
     Active Substance: FENTANYL
     Dosage: UNKNOWN
  4. MEYLON [Concomitant]
     Active Substance: SODIUM BICARBONATE
     Dosage: UNKNOWN
  5. ARGIPRESSIN [Concomitant]
     Active Substance: ARGIPRESSIN
     Dosage: UNKNOWN
  6. PROPOFOL [Concomitant]
     Active Substance: PROPOFOL
     Dosage: UNKNOWN

REACTIONS (2)
  - Death [Fatal]
  - Product use in unapproved indication [Unknown]

NARRATIVE: CASE EVENT DATE: 20250901
